FAERS Safety Report 22182495 (Version 2)
Quarter: 2023Q2

REPORT INFORMATION
  Report Type: Spontaneous
  Country: FR (occurrence: FR)
  Receive Date: 20230406
  Receipt Date: 20230419
  Transmission Date: 20230721
  Serious: Yes (Life-Threatening)
  Sender: FDA-Public Use
  Company Number: None

PATIENT
  Age: 54 Year
  Sex: Female

DRUGS (4)
  1. AZTREONAM LYSINE [Suspect]
     Active Substance: AZTREONAM LYSINE
     Indication: Hip arthroplasty
     Dosage: 2 G
     Route: 042
     Dates: start: 20230316, end: 20230316
  2. AZACTAM [Suspect]
     Active Substance: AZTREONAM
     Indication: Hip arthroplasty
     Dosage: 2 G
     Route: 042
     Dates: start: 20230316, end: 20230316
  3. LINEZOLID [Suspect]
     Active Substance: LINEZOLID
     Indication: Hip arthroplasty
     Dosage: 600 MG
     Route: 042
     Dates: start: 20230316, end: 20230316
  4. ROCURONIUM [Concomitant]
     Active Substance: ROCURONIUM BROMIDE
     Indication: Induction of anaesthesia
     Dosage: 100 MG
     Route: 017
     Dates: start: 20230316, end: 20230316

REACTIONS (1)
  - Hypotension [Recovered/Resolved]

NARRATIVE: CASE EVENT DATE: 20230316
